FAERS Safety Report 20945030 (Version 1)
Quarter: 2022Q2

REPORT INFORMATION
  Report Type: Spontaneous
  Country: CN (occurrence: CN)
  Receive Date: 20220610
  Receipt Date: 20220610
  Transmission Date: 20220720
  Serious: Yes (Other)
  Sender: FDA-Public Use
  Company Number: CN-BAYER-2022A081866

PATIENT

DRUGS (2)
  1. ULTRAVIST [Suspect]
     Active Substance: IOPROMIDE
  2. ASPIRIN [Suspect]
     Active Substance: ASPIRIN

REACTIONS (1)
  - Dermatitis exfoliative [Recovering/Resolving]
